FAERS Safety Report 14177824 (Version 2)
Quarter: 2017Q4

REPORT INFORMATION
  Report Type: Spontaneous
  Country: US (occurrence: US)
  Receive Date: 20171110
  Receipt Date: 20171110
  Transmission Date: 20180321
  Serious: No
  Sender: FDA-Public Use
  Company Number: US-BAYER-2017-215353

PATIENT
  Sex: Female

DRUGS (3)
  1. CLARITIN [Suspect]
     Active Substance: LORATADINE
     Indication: MULTIPLE ALLERGIES
     Dosage: 1 DF, UNK
     Route: 048
     Dates: start: 20171106, end: 20171106
  2. CLARITIN [Suspect]
     Active Substance: LORATADINE
     Indication: HYPERSENSITIVITY
  3. CLARITIN [Suspect]
     Active Substance: LORATADINE
     Indication: CHILLS

REACTIONS (5)
  - Upper-airway cough syndrome [Unknown]
  - Feeling abnormal [Unknown]
  - Anxiety [None]
  - Product use in unapproved indication [Unknown]
  - Loss of personal independence in daily activities [Unknown]

NARRATIVE: CASE EVENT DATE: 20171106
